FAERS Safety Report 5771539-1 (Version None)
Quarter: 2008Q2

REPORT INFORMATION
  Report Type: 
  Country: None (occurrence: None)
  Receive Date: 20080613
  Receipt Date: 20080307
  Transmission Date: 20081010
  Serious: Yes (Other)
  Sender: FDA-Public Use
  Company Number: IT-BAYER-200819537GPV

PATIENT

DRUGS (4)
  1. FLUDARABINE PHOSPHATE [Suspect]
     Indication: B-CELL LYMPHOMA
     Route: 042
  2. DEXAMETHASONE TAB [Suspect]
     Indication: B-CELL LYMPHOMA
     Route: 065
  3. MITOXANTRONE [Suspect]
     Indication: B-CELL LYMPHOMA
     Route: 065
  4. RITUXIMAB [Suspect]
     Indication: B-CELL LYMPHOMA
     Route: 065

REACTIONS (4)
  - CARDIOTOXICITY [None]
  - INFECTION [None]
  - NEUTROPENIA [None]
  - PULMONARY TOXICITY [None]
